FAERS Safety Report 25725041 (Version 1)
Quarter: 2025Q3

REPORT INFORMATION
  Report Type: Spontaneous
  Country: EU (occurrence: EU)
  Receive Date: 20250826
  Receipt Date: 20250826
  Transmission Date: 20251020
  Serious: Yes (Other)
  Sender: ALKEM
  Company Number: EU-ALKEM LABORATORIES LIMITED-FR-ALKEM-2025-02447

PATIENT
  Age: 33 Year
  Sex: Male

DRUGS (3)
  1. PREGABALIN [Suspect]
     Active Substance: PREGABALIN
     Indication: Pain
     Route: 065
  2. PREGABALIN [Suspect]
     Active Substance: PREGABALIN
     Dosage: 8400 MILLIGRAM, QD (SUBSEQUENTLY REQUIRED DOSE ESCALATION, REACHED)
     Route: 065
  3. PREGABALIN [Suspect]
     Active Substance: PREGABALIN
     Route: 065

REACTIONS (4)
  - Drug use disorder [Unknown]
  - Drug dependence [Unknown]
  - Emotional distress [Unknown]
  - Anxiety [Unknown]
